FAERS Safety Report 9887971 (Version 1)
Quarter: 2014Q1

REPORT INFORMATION
  Report Type: Spontaneous
  Country: JP (occurrence: None)
  Receive Date: 20140207
  Receipt Date: 20140207
  Transmission Date: 20141002
  Serious: No
  Sender: FDA-Public Use
  Company Number: None

PATIENT
  Age: 65 Year
  Sex: Female
  Weight: 46.3 kg

DRUGS (5)
  1. ENALAPRIL [Suspect]
  2. LIPOSORBER LA-15 SYSTEM [Suspect]
  3. PLASMA SEPARATOR [Concomitant]
  4. SULFLUX FP-05 (ASAHI-KASEI MEDICAL CO., LTD) [Concomitant]
  5. MA-03 APHERESIS MACHINE (NIKKISO CO., LTD) [Concomitant]

REACTIONS (3)
  - Procedural complication [None]
  - Shock [None]
  - Contraindication to medical treatment [None]
